FAERS Safety Report 6329671-X (Version None)
Quarter: 2009Q3

REPORT INFORMATION
  Report Type: 
  Country: None (occurrence: None)
  Receive Date: 20090824
  Receipt Date: 20090824
  Transmission Date: 20100115
  Serious: Yes (Hospitalization)
  Sender: FDA-Public Use
  Company Number: None

PATIENT
  Age: 84 Year
  Sex: Female
  Weight: 53.978 kg

DRUGS (2)
  1. SUNITINIB MALATE 50 MG PFIZER [Suspect]
     Indication: DEHYDRATION
     Dosage: 50 NG QD PO
     Route: 048
     Dates: start: 20090813, end: 20090819
  2. SUNITINIB MALATE 50 MG PFIZER [Suspect]
     Indication: RENAL FAILURE ACUTE
     Dosage: 50 NG QD PO
     Route: 048
     Dates: start: 20090813, end: 20090819

REACTIONS (2)
  - DEHYDRATION [None]
  - RENAL FAILURE ACUTE [None]
